FAERS Safety Report 14725802 (Version 1)
Quarter: 2018Q2

REPORT INFORMATION
  Report Type: Spontaneous
  Country: SE (occurrence: SE)
  Receive Date: 20180406
  Receipt Date: 20180406
  Transmission Date: 20180711
  Serious: Yes (Life-Threatening)
  Sender: FDA-Public Use
  Company Number: SE-TEVA-2018-SE-878841

PATIENT
  Age: 63 Year
  Sex: Female

DRUGS (11)
  1. ALVEDON [Concomitant]
     Active Substance: ACETAMINOPHEN
  2. KALCIPOS-D FORTE [Concomitant]
     Active Substance: CALCIUM CARBONATE\CHOLECALCIFEROL
  3. CETIRIZINE [Concomitant]
     Active Substance: CETIRIZINE HYDROCHLORIDE
  4. NAPROXEN. [Concomitant]
     Active Substance: NAPROXEN
  5. BETOLVEX [Concomitant]
     Active Substance: CYANOCOBALAMIN
  6. ISOPHANE INSULIN [Concomitant]
     Active Substance: INSULIN NOS
  7. ATORVASTATIN [Concomitant]
     Active Substance: ATORVASTATIN
  8. EMERADE [Concomitant]
  9. DUROFERON [Concomitant]
     Active Substance: FERROUS SULFATE
  10. METFORMIN [Suspect]
     Active Substance: METFORMIN HYDROCHLORIDE
     Indication: TYPE 2 DIABETES MELLITUS
     Dosage: 3000 MILLIGRAM DAILY;
     Dates: end: 20170124
  11. ENALAPRIL [Concomitant]
     Active Substance: ENALAPRIL
     Dates: end: 20180125

REACTIONS (1)
  - Acidosis [Recovered/Resolved]

NARRATIVE: CASE EVENT DATE: 20180124
